FAERS Safety Report 13447917 (Version 1)
Quarter: 2017Q2

REPORT INFORMATION
  Report Type: Spontaneous
  Country: US (occurrence: US)
  Receive Date: 20170417
  Receipt Date: 20170417
  Transmission Date: 20170830
  Serious: Yes (Other)
  Sender: FDA-Public Use
  Company Number: US-SMITH AND NEPHEW, INC-2017SMT00221

PATIENT
  Sex: Male
  Weight: 74.38 kg

DRUGS (11)
  1. UNSPECIFIED DIABETES MEDICATION [Concomitant]
  2. REGRANEX [Suspect]
     Active Substance: BECAPLERMIN
     Indication: DIABETIC ULCER
     Dosage: UNK UNK, 1X/DAY FOR 12 HOURS ON AND 12 HOURS OFF
     Route: 061
     Dates: start: 201703
  3. UNSPECIFIED KIDNEY MEDICATION [Concomitant]
  4. UNSPECIFIED MULTIVITAMIN [Concomitant]
     Dosage: UNK, 1X/DAY
  5. UNSPECIFIED LIVER MEDICATION [Concomitant]
  6. VITAMIN D [Concomitant]
     Active Substance: CHOLECALCIFEROL
     Dosage: UNK, 1X/DAY
  7. ASPIRIN. [Concomitant]
     Active Substance: ASPIRIN
  8. UNSPECIFIED CHOLESTEROL MEDICATION [Concomitant]
     Active Substance: UNSPECIFIED INGREDIENT
  9. UNSPECIFIED BLOOD THINNER [Concomitant]
     Active Substance: UNSPECIFIED INGREDIENT
  10. OMEGA 369 [Concomitant]
     Active Substance: FISH OIL
     Dosage: UNK, 1X/DAY
  11. UNSPECIFIED FOOT MEDICATION [Concomitant]
     Indication: HYPOAESTHESIA
     Dosage: UNK, 2X/DAY

REACTIONS (3)
  - Osteomyelitis [Not Recovered/Not Resolved]
  - Drug ineffective [Not Recovered/Not Resolved]
  - Wound complication [Not Recovered/Not Resolved]

NARRATIVE: CASE EVENT DATE: 2017
